FAERS Safety Report 7031696-6 (Version None)
Quarter: 2010Q4

REPORT INFORMATION
  Report Type: 
  Country: None (occurrence: None)
  Receive Date: 20101007
  Receipt Date: 20100924
  Transmission Date: 20110411
  Serious: Yes (Hospitalization, Other)
  Sender: FDA-Public Use
  Company Number: GB-BIOGENIDEC-2010BI016060

PATIENT
  Age: 45 Year
  Sex: Female

DRUGS (7)
  1. TYSABRI [Suspect]
     Indication: MULTIPLE SCLEROSIS
     Route: 042
     Dates: start: 20090320, end: 20100127
  2. LEVOTHYROXINE SODIUM [Concomitant]
     Indication: THYROID DISORDER
  3. GABAPENTIN [Concomitant]
     Indication: NEURALGIA
  4. MODAFINIL [Concomitant]
     Indication: FATIGUE
  5. LANSOPRAZOLE [Concomitant]
     Indication: GASTRIC DISORDER
  6. CITRALOPRAM [Concomitant]
     Indication: DEPRESSION
  7. VESICARE [Concomitant]
     Indication: BLADDER DISORDER

REACTIONS (1)
  - GOITRE [None]
